FAERS Safety Report 20347762 (Version 1)
Quarter: 2022Q1

REPORT INFORMATION
  Report Type: Spontaneous
  Country: US (occurrence: US)
  Receive Date: 20220118
  Receipt Date: 20220118
  Transmission Date: 20220423
  Serious: No
  Sender: FDA-Public Use
  Company Number: US-PFIZER INC-2019202076

PATIENT
  Age: 54 Year
  Sex: Male

DRUGS (3)
  1. RAPAMUNE [Suspect]
     Active Substance: SIROLIMUS
     Indication: Renal transplant
     Dosage: 1.5 MG, ONCE DAILY (EVERY MORNING, 1 HOUR BEFORE BREAKFAST)
     Route: 048
  2. RAPAMUNE [Suspect]
     Active Substance: SIROLIMUS
     Indication: Pancreas transplant
     Dosage: 1 MG, DAILY
     Route: 048
  3. RAPAMUNE [Suspect]
     Active Substance: SIROLIMUS
     Dosage: 1.5 MG, DAILY (0.5 MG, TAKE 1 TABLET BY MOUTH EVERY MORNING AND 1MG, TAKE 1 TABLET BY MOUTH DAILY)
     Route: 048

REACTIONS (2)
  - Blood creatinine increased [Unknown]
  - Infection [Unknown]
